FAERS Safety Report 15863765 (Version 1)
Quarter: 2019Q1

REPORT INFORMATION
  Report Type: Spontaneous
  Country: US (occurrence: US)
  Receive Date: 20190124
  Receipt Date: 20190124
  Transmission Date: 20190417
  Serious: No
  Sender: FDA-Public Use
  Company Number: US-ENDO PHARMACEUTICALS INC-2018-041330

PATIENT
  Sex: Male
  Weight: 68.03 kg

DRUGS (1)
  1. FORTESTA [Suspect]
     Active Substance: TESTOSTERONE
     Indication: BLOOD TESTOSTERONE DECREASED
     Dosage: UNK MG, UNKNOWN
     Route: 061
     Dates: start: 2018

REACTIONS (7)
  - Application site pain [Unknown]
  - Application site exfoliation [Unknown]
  - Application site dryness [Unknown]
  - Application site erythema [Unknown]
  - Application site pruritus [Unknown]
  - Product administered at inappropriate site [Recovered/Resolved]
  - Application site rash [Unknown]

NARRATIVE: CASE EVENT DATE: 2018
